FAERS Safety Report 4978657-6 (Version None)
Quarter: 2006Q2

REPORT INFORMATION
  Report Type: 
  Country: None (occurrence: None)
  Receive Date: 20060420
  Receipt Date: 20060123
  Transmission Date: 20061013
  Serious: Yes (Hospitalization, Disabling)
  Sender: FDA-Public Use
  Company Number: US-MERCK-0601USA02657

PATIENT
  Age: 36 Year
  Sex: Female
  Weight: 79 kg

DRUGS (4)
  1. TYLENOL (CAPLET) [Concomitant]
     Route: 048
  2. VIOXX [Suspect]
     Indication: ARTHRITIS
     Route: 048
     Dates: start: 20020801, end: 20041001
  3. MOTRIN [Concomitant]
     Route: 048
  4. ALEVE [Concomitant]
     Route: 048

REACTIONS (7)
  - CEREBROVASCULAR ACCIDENT [None]
  - CHEST PAIN [None]
  - DEPRESSION [None]
  - HEADACHE [None]
  - HEART RATE INCREASED [None]
  - HYPERTHYROIDISM [None]
  - ISCHAEMIC STROKE [None]
